FAERS Safety Report 6885602-5 (Version None)
Quarter: 2010Q3

REPORT INFORMATION
  Report Type: 
  Country: None (occurrence: None)
  Receive Date: 20100729
  Receipt Date: 20080625
  Transmission Date: 20110219
  Serious: No
  Sender: FDA-Public Use
  Company Number: US-PFIZER INC-2008040422

PATIENT
  Sex: Female
  Weight: 53.6 kg

DRUGS (6)
  1. CELEBREX [Suspect]
     Indication: ARTHRITIS
  2. LIPITOR [Concomitant]
  3. DETROL [Concomitant]
  4. CALCIUM [Concomitant]
  5. FISH OIL [Concomitant]
  6. ACETAMINOPHEN [Concomitant]

REACTIONS (1)
  - DRUG INEFFECTIVE [None]
